FAERS Safety Report 7234354-8 (Version None)
Quarter: 2011Q1

REPORT INFORMATION
  Report Type: 
  Country: None (occurrence: None)
  Receive Date: 20110119
  Receipt Date: 20110118
  Transmission Date: 20110831
  Serious: Yes (Life-Threatening, Hospitalization)
  Sender: FDA-Public Use
  Company Number: DE-JNJCH-2011001404

PATIENT
  Sex: Male

DRUGS (1)
  1. LISTERINE (UNSPECIFIED) [Suspect]
     Indication: PRODUCT USED FOR UNKNOWN INDICATION
     Dosage: TEXT:ONCE
     Route: 048
     Dates: start: 20110111, end: 20110111

REACTIONS (1)
  - ANAPHYLACTIC SHOCK [None]
